FAERS Safety Report 25092019 (Version 2)
Quarter: 2025Q2

REPORT INFORMATION
  Report Type: Spontaneous
  Country: FR (occurrence: FR)
  Receive Date: 20250318
  Receipt Date: 20250401
  Transmission Date: 20250716
  Serious: Yes (Hospitalization)
  Sender: SANOFI AVENTIS
  Company Number: None

PATIENT
  Age: 69 Year
  Sex: Male

DRUGS (5)
  1. LOVENOX [Suspect]
     Active Substance: ENOXAPARIN SODIUM
     Indication: Thrombosis prophylaxis
     Dosage: 1 DF, QD
     Route: 058
     Dates: start: 20250223
  2. IOMERON [Suspect]
     Active Substance: IOMEPROL
     Indication: Scan with contrast
     Route: 042
     Dates: start: 20250224, end: 20250224
  3. FUROSEMIDE [Concomitant]
     Active Substance: FUROSEMIDE
  4. BISOPROLOL FUMARATE [Concomitant]
     Active Substance: BISOPROLOL FUMARATE
  5. FENOFIBRATE [Concomitant]
     Active Substance: FENOFIBRATE

REACTIONS (1)
  - Rash maculo-papular [Recovering/Resolving]

NARRATIVE: CASE EVENT DATE: 20250301
